FAERS Safety Report 7756502-3 (Version None)
Quarter: 2011Q3

REPORT INFORMATION
  Report Type: 
  Country: None (occurrence: None)
  Receive Date: 20110916
  Receipt Date: 20100430
  Transmission Date: 20111222
  Serious: No
  Sender: FDA-Public Use
  Company Number: US-BAYER-201021911NA

PATIENT
  Sex: Female

DRUGS (1)
  1. MIRENA [Suspect]
     Dosage: UNK
     Dates: start: 20100301

REACTIONS (5)
  - BREAST TENDERNESS [None]
  - UTERINE SPASM [None]
  - METRORRHAGIA [None]
  - VAGINAL HAEMORRHAGE [None]
  - BREAST ENLARGEMENT [None]
